FAERS Safety Report 6515071-6 (Version None)
Quarter: 2009Q4

REPORT INFORMATION
  Report Type: 
  Country: None (occurrence: None)
  Receive Date: 20091223
  Receipt Date: 20091210
  Transmission Date: 20100525
  Serious: Yes (Hospitalization)
  Sender: FDA-Public Use
  Company Number: FR-RANBAXY-2009RR-29605

PATIENT
  Age: 40 Year
  Sex: Female

DRUGS (10)
  1. LAMOTRIGINE [Suspect]
     Dosage: 50 MG, UNK
  2. LAMOTRIGINE [Suspect]
     Dosage: 100 MG, UNK
  3. PHENOBARBITAL [Suspect]
     Indication: EPILEPSY
     Dosage: 100 MG, UNK
  4. PHENOBARBITAL [Suspect]
     Dosage: 50 MG, UNK
  5. CLONAZEPAM [Suspect]
  6. SUCCINYLCHOLINE CHLORIDE [Concomitant]
  7. CLOBAZAM [Concomitant]
     Dosage: 10 MG, UNK
  8. LEVETIRACETAM [Concomitant]
     Dosage: 1000 MG, UNK
  9. THIOPENTAL SODIUM [Concomitant]
  10. SUCCINYLCHOLINE CHLORIDE [Concomitant]

REACTIONS (1)
  - DRUG RASH WITH EOSINOPHILIA AND SYSTEMIC SYMPTOMS [None]
